FAERS Safety Report 4598887-5 (Version None)
Quarter: 2005Q1

REPORT INFORMATION
  Report Type: 
  Country: None (occurrence: None)
  Receive Date: 20050301
  Receipt Date: 20050210
  Transmission Date: 20050727
  Serious: Yes (Other)
  Sender: FDA-Public Use
  Company Number: A03200500430

PATIENT
  Age: 67 Year
  Sex: Female
  Weight: 53.978 kg

DRUGS (2)
  1. PLAVIX [Suspect]
     Indication: STENT PLACEMENT
     Dosage: 75 MG QD - ORAL
     Route: 048
     Dates: start: 20040501, end: 20040501
  2. ACETYLSALICYLIC ACID SRT [Concomitant]

REACTIONS (20)
  - ABASIA [None]
  - ABDOMINAL PAIN UPPER [None]
  - AMNESIA [None]
  - ANAESTHETIC COMPLICATION [None]
  - ARTHRALGIA [None]
  - ASTHENIA [None]
  - CHILLS [None]
  - FEELING ABNORMAL [None]
  - HYPERSENSITIVITY [None]
  - IMMUNE SYSTEM DISORDER [None]
  - IMMUNODEFICIENCY [None]
  - JUDGEMENT IMPAIRED [None]
  - OEDEMA PERIPHERAL [None]
  - PAIN IN EXTREMITY [None]
  - PNEUMONIA [None]
  - PYREXIA [None]
  - RASH [None]
  - SEPSIS [None]
  - VISUAL ACUITY REDUCED [None]
  - VOMITING [None]
